FAERS Safety Report 20788126 (Version 1)
Quarter: 2022Q2

REPORT INFORMATION
  Report Type: Spontaneous
  Country: US (occurrence: US)
  Receive Date: 20220505
  Receipt Date: 20220505
  Transmission Date: 20220720
  Serious: No
  Sender: FDA-Public Use
  Company Number: US-STRIDES ARCOLAB LIMITED-2022SP002599

PATIENT
  Age: 48 Year
  Sex: Female

DRUGS (6)
  1. OXYCODONE [Suspect]
     Active Substance: OXYCODONE
     Indication: Bone pain
     Dosage: UNK (IMMEDIATE-RELEASE)
     Route: 065
  2. LORATADINE [Suspect]
     Active Substance: LORATADINE
     Indication: Bone pain
     Dosage: 10 MILLIGRAM, ONCE DAILY
     Route: 065
  3. PEGFILGRASTIM [Concomitant]
     Active Substance: PEGFILGRASTIM
     Indication: Product used for unknown indication
     Dosage: 6 MILLIGRAM (27 HOURS AFTER COMPLETION OF EACH DOSE-DENSE DOXORUBICIN AND CYCLOPHOSPHAMIDE INFUSION)
     Route: 065
  4. DOXORUBICIN [Concomitant]
     Active Substance: DOXORUBICIN
     Indication: Invasive ductal breast carcinoma
     Dosage: UNK, CYCLICAL EVERY 2 WEEKS
     Route: 065
  5. CYCLOPHOSPHAMIDE [Concomitant]
     Active Substance: CYCLOPHOSPHAMIDE
     Indication: Invasive ductal breast carcinoma
     Dosage: UNK, CYCLICAL, EVERY 2 WEEKS
     Route: 065
  6. PACLITAXEL [Concomitant]
     Active Substance: PACLITAXEL
     Indication: Invasive ductal breast carcinoma
     Dosage: UNK, ONCE A WEEK
     Route: 065

REACTIONS (3)
  - Constipation [Unknown]
  - Condition aggravated [Unknown]
  - Off label use [Unknown]
